FAERS Safety Report 12115387 (Version 1)
Quarter: 2016Q1

REPORT INFORMATION
  Report Type: Spontaneous
  Country: NL (occurrence: NL)
  Receive Date: 20160225
  Receipt Date: 20160225
  Transmission Date: 20160526
  Serious: Yes (Life-Threatening, Hospitalization, Other)
  Sender: FDA-Public Use
  Company Number: NL-AMGEN-NLDSP2016020279

PATIENT
  Age: 78 Year
  Sex: Female
  Weight: 91 kg

DRUGS (8)
  1. METOCLOPRAMIDE. [Concomitant]
     Active Substance: METOCLOPRAMIDE
     Dosage: UNK, TIMES PER DF
  2. FILGRASTIM [Suspect]
     Active Substance: FILGRASTIM
     Indication: NEUTROPENIA
  3. PARACETAMOL [Concomitant]
     Active Substance: ACETAMINOPHEN
     Dosage: UNK, TIMES PER DF
  4. TINZAPARINE SODIQUE [Concomitant]
     Dosage: 10.000 IE/ML, TIMES PER DF
  5. PERINDOPRIL                        /00790702/ [Concomitant]
     Dosage: 2 MG, TIMES PER DF
  6. FILGRASTIM [Suspect]
     Active Substance: FILGRASTIM
     Indication: MYELODYSPLASTIC SYNDROME
     Dosage: UNK UNK, 1 TIMES PER 1 DAYS 1 DF
     Route: 058
     Dates: start: 20160205, end: 20160206
  7. CIPROFLOXACINE                     /00697201/ [Suspect]
     Active Substance: CIPROFLOXACIN
     Indication: PROPHYLAXIS
     Dosage: 250 MG, 1 TIMES PER 1 DAYS DF
     Route: 065
     Dates: start: 20160205, end: 20160206
  8. FLUCONAZOL [Concomitant]
     Active Substance: FLUCONAZOLE
     Dosage: UNK, TIMES PER DF

REACTIONS (1)
  - Anaphylactic shock [Recovering/Resolving]

NARRATIVE: CASE EVENT DATE: 20160206
